FAERS Safety Report 5023961-9 (Version None)
Quarter: 2006Q2

REPORT INFORMATION
  Report Type: 
  Country: None (occurrence: None)
  Receive Date: 20060426
  Receipt Date: 20060210
  Transmission Date: 20061013
  Serious: Yes (Other)
  Sender: FDA-Public Use
  Company Number: 2006021070

PATIENT
  Age: 46 Year
  Sex: Female

DRUGS (4)
  1. LYRICA [Suspect]
     Indication: FIBROMYALGIA
     Dosage: 150 MG (50 MG, 3 IN 1 D),
     Dates: start: 20051031, end: 20051201
  2. LEXAPRO [Concomitant]
  3. NORCO [Concomitant]
  4. OXYCODONE HCL [Concomitant]

REACTIONS (1)
  - OEDEMA PERIPHERAL [None]
